FAERS Safety Report 18612306 (Version 3)
Quarter: 2020Q4

REPORT INFORMATION
  Report Type: Spontaneous
  Country: IQ (occurrence: IQ)
  Receive Date: 20201214
  Receipt Date: 20201228
  Transmission Date: 20210114
  Serious: Yes (Death, Other)
  Sender: FDA-Public Use
  Company Number: IQ-BIOMARINAP-IQ-2020-133844

PATIENT
  Age: 10 Year
  Sex: Female
  Weight: 18.5 kg

DRUGS (1)
  1. NAGLAZYME [Suspect]
     Active Substance: GALSULFASE
     Indication: MUCOPOLYSACCHARIDOSIS VI
     Dosage: 1 MILLIGRAM/KILOGRAM, QW
     Route: 042
     Dates: start: 20201207

REACTIONS (3)
  - Aortic stenosis [Fatal]
  - Dyspnoea [Unknown]
  - Apnoea [Unknown]

NARRATIVE: CASE EVENT DATE: 20201209
